FAERS Safety Report 24596460 (Version 1)
Quarter: 2024Q4

REPORT INFORMATION
  Report Type: Spontaneous
  Country: US (occurrence: US)
  Receive Date: 20241110
  Receipt Date: 20241110
  Transmission Date: 20250115
  Serious: No
  Sender: SANOFI AVENTIS
  Company Number: US-SA-2024SA307616

PATIENT
  Sex: Female

DRUGS (16)
  1. KEVZARA [Suspect]
     Active Substance: SARILUMAB
     Dosage: UNK
  2. XANAX [Concomitant]
     Active Substance: ALPRAZOLAM
  3. MEDROL [Concomitant]
     Active Substance: METHYLPREDNISOLONE
  4. VOLTAREN [Concomitant]
     Active Substance: DICLOFENAC SODIUM
  5. NORVASC [Concomitant]
     Active Substance: AMLODIPINE BESYLATE
  6. LYRICA [Concomitant]
     Active Substance: PREGABALIN
  7. FAMOTIDINE [Concomitant]
     Active Substance: FAMOTIDINE
  8. TOPROL XL [Concomitant]
     Active Substance: METOPROLOL SUCCINATE
  9. OXYCODONE HYDROCHLORIDE [Concomitant]
     Active Substance: OXYCODONE HYDROCHLORIDE
  10. SPIRONOLACTONE [Concomitant]
     Active Substance: SPIRONOLACTONE
  11. CYCLOBENZAPRINE HYDROCHLORIDE [Concomitant]
     Active Substance: CYCLOBENZAPRINE HYDROCHLORIDE
  12. RIZATRIPTAN [Concomitant]
     Active Substance: RIZATRIPTAN
  13. FETZIMA [Concomitant]
     Active Substance: LEVOMILNACIPRAN HYDROCHLORIDE
  14. IBUPROFEN [Concomitant]
     Active Substance: IBUPROFEN
  15. LEVOCARNITINE [Concomitant]
     Active Substance: LEVOCARNITINE
  16. PLAQUENIL [Concomitant]
     Active Substance: HYDROXYCHLOROQUINE SULFATE

REACTIONS (1)
  - Mucosa vesicle [Unknown]
